FAERS Safety Report 8053620-X (Version None)
Quarter: 2012Q1

REPORT INFORMATION
  Report Type: 
  Country: None (occurrence: None)
  Receive Date: 20120118
  Receipt Date: 20120109
  Transmission Date: 20120608
  Serious: Yes (Hospitalization, Other)
  Sender: FDA-Public Use
  Company Number: US-BAYER-2010-002166

PATIENT
  Age: 18 Year
  Sex: Female
  Weight: 76.19 kg

DRUGS (2)
  1. YAZ [Suspect]
     Indication: ACNE
     Dosage: UNK
     Dates: start: 20050901, end: 20070701
  2. YASMIN [Suspect]
     Indication: ACNE
     Dosage: UNK
     Dates: start: 20050901, end: 20070701

REACTIONS (8)
  - GASTROINTESTINAL DISORDER [None]
  - QUALITY OF LIFE DECREASED [None]
  - CHOLECYSTITIS CHRONIC [None]
  - ANHEDONIA [None]
  - PAIN [None]
  - FEAR [None]
  - GALLBLADDER DISORDER [None]
  - ANXIETY [None]
